FAERS Safety Report 7951373-4 (Version None)
Quarter: 2011Q4

REPORT INFORMATION
  Report Type: 
  Country: None (occurrence: None)
  Receive Date: 20111129
  Receipt Date: 20111115
  Transmission Date: 20120403
  Serious: Yes (Hospitalization)
  Sender: FDA-Public Use
  Company Number: 1000023574

PATIENT
  Age: 84 Year
  Sex: Male

DRUGS (6)
  1. MEMANTINE HYDROCHLORIDE [Suspect]
     Indication: DEMENTIA ALZHEIMER'S TYPE
     Dosage: 5 MG (5 MG, 1 IN 1 D); 10 MG (10 MG,1 IN 1D); 15 MG (15 MG, 1 IN 1 D)
     Dates: start: 20110101, end: 20110101
  2. MEMANTINE HYDROCHLORIDE [Suspect]
     Indication: DEMENTIA ALZHEIMER'S TYPE
     Dosage: 5 MG (5 MG, 1 IN 1 D); 10 MG (10 MG,1 IN 1D); 15 MG (15 MG, 1 IN 1 D)
     Dates: start: 20110623, end: 20110101
  3. MEMANTINE HYDROCHLORIDE [Suspect]
     Indication: DEMENTIA ALZHEIMER'S TYPE
     Dosage: 5 MG (5 MG, 1 IN 1 D); 10 MG (10 MG,1 IN 1D); 15 MG (15 MG, 1 IN 1 D)
     Dates: start: 20110101, end: 20110714
  4. ARICEPT [Concomitant]
  5. MEMANTINE HYDROCHLORIDE [Suspect]
     Indication: DEMENTIA ALZHEIMER'S TYPE
     Dosage: 20 MG (20 MG, 1 IN 1 D); ORAL
     Route: 048
     Dates: start: 20110715, end: 20110817
  6. MEMANTINE HYDROCHLORIDE [Suspect]
     Indication: DEMENTIA ALZHEIMER'S TYPE
     Dosage: 20 MG (20 MG, 1 IN 1 D); ORAL
     Route: 048
     Dates: start: 20110101

REACTIONS (3)
  - PYREXIA [None]
  - COORDINATION ABNORMAL [None]
  - FEELING ABNORMAL [None]
